FAERS Safety Report 18542908 (Version 1)
Quarter: 2020Q4

REPORT INFORMATION
  Report Type: Spontaneous
  Country: US (occurrence: US)
  Receive Date: 20201124
  Receipt Date: 20201124
  Transmission Date: 20210114
  Serious: Yes (Other)
  Sender: FDA-Public Use
  Company Number: US-TEVA-2020-US-1851606

PATIENT
  Age: 60 Year
  Sex: Male

DRUGS (9)
  1. ESOMEPRA MAG [Concomitant]
  2. OCREVUS [Concomitant]
     Active Substance: OCRELIZUMAB
  3. PRAVASTATIN. [Concomitant]
     Active Substance: PRAVASTATIN
  4. HUMALOG [Concomitant]
     Active Substance: INSULIN LISPRO
  5. COPAXONE [Suspect]
     Active Substance: GLATIRAMER ACETATE
     Indication: MULTIPLE SCLEROSIS
     Route: 058
     Dates: start: 20180213
  6. AMPYRA [Concomitant]
     Active Substance: DALFAMPRIDINE
  7. ASPIRIN. [Concomitant]
     Active Substance: ASPIRIN
  8. BACLOFEN. [Concomitant]
     Active Substance: BACLOFEN
  9. VITAMIN D [Concomitant]
     Active Substance: VITAMIN D NOS

REACTIONS (5)
  - Depression [Not Recovered/Not Resolved]
  - Multiple sclerosis [Not Recovered/Not Resolved]
  - Depressed mood [Not Recovered/Not Resolved]
  - Fatigue [Not Recovered/Not Resolved]
  - Musculoskeletal stiffness [Not Recovered/Not Resolved]
